FAERS Safety Report 5710842-8 (Version None)
Quarter: 2008Q2

REPORT INFORMATION
  Report Type: 
  Country: None (occurrence: None)
  Receive Date: 20080417
  Receipt Date: 20080417
  Transmission Date: 20081010
  Serious: Yes (Other)
  Sender: FDA-Public Use
  Company Number: None

PATIENT
  Age: 52 Year
  Sex: Female
  Weight: 86.1834 kg

DRUGS (4)
  1. BUPROPION HCL [Suspect]
     Indication: DEPRESSION
     Dosage: 1  2  PO
     Route: 048
     Dates: start: 20060101, end: 20060201
  2. BUPROPION HCL [Suspect]
     Indication: MIGRAINE
     Dosage: 1  2  PO
     Route: 048
     Dates: start: 20060101, end: 20060201
  3. BUPROPION HCL [Suspect]
     Indication: DEPRESSION
     Dosage: 1  2  PO
     Route: 048
     Dates: start: 20060201, end: 20060301
  4. BUPROPION HCL [Suspect]
     Indication: MIGRAINE
     Dosage: 1  2  PO
     Route: 048
     Dates: start: 20060201, end: 20060301

REACTIONS (3)
  - DRUG INEFFECTIVE [None]
  - PHARMACEUTICAL PRODUCT COMPLAINT [None]
  - THERAPEUTIC RESPONSE UNEXPECTED WITH DRUG SUBSTITUTION [None]
